FAERS Safety Report 20882269 (Version 2)
Quarter: 2022Q2

REPORT INFORMATION
  Report Type: Spontaneous
  Country: US (occurrence: US)
  Receive Date: 20220527
  Receipt Date: 20220614
  Transmission Date: 20220721
  Serious: Yes (Death, Hospitalization, Other)
  Sender: FDA-Public Use
  Company Number: US-AMGEN-USASP2022085439

PATIENT
  Age: 65 Year
  Sex: Male

DRUGS (2)
  1. RITUXIMAB [Suspect]
     Active Substance: RITUXIMAB
     Indication: Granulomatosis with polyangiitis
     Dosage: UNK
     Route: 065
  2. RITUXIMAB [Suspect]
     Active Substance: RITUXIMAB
     Indication: Glomerulonephritis

REACTIONS (6)
  - Death [Fatal]
  - Mitral valve disease [Unknown]
  - Thrombosis [Unknown]
  - Hypervolaemia [Unknown]
  - Confusional state [Unknown]
  - Drug ineffective [Unknown]
